FAERS Safety Report 6165123-8 (Version None)
Quarter: 2009Q2

REPORT INFORMATION
  Report Type: 
  Country: None (occurrence: None)
  Receive Date: 20090421
  Receipt Date: 20090421
  Transmission Date: 20091009
  Serious: Yes (Other)
  Sender: FDA-Public Use
  Company Number: None

PATIENT
  Age: 37 Year
  Sex: Female
  Weight: 82 kg

DRUGS (2)
  1. LEVOFLOXACIN [Suspect]
     Indication: CYSTITIS BACTERIAL
     Dosage: 500 MG 2 DAILY
     Dates: start: 20090406, end: 20090408
  2. LEVOFLOXACIN [Suspect]
     Indication: PROTEUS INFECTION
     Dosage: 500 MG 2 DAILY
     Dates: start: 20090406, end: 20090408

REACTIONS (4)
  - ANXIETY [None]
  - HERPES ZOSTER [None]
  - PANIC ATTACK [None]
  - RESTLESSNESS [None]
